FAERS Safety Report 5952094-X (Version None)
Quarter: 2008Q4

REPORT INFORMATION
  Report Type: 
  Country: None (occurrence: None)
  Receive Date: 20081113
  Receipt Date: 20080402
  Transmission Date: 20090506
  Serious: No
  Sender: FDA-Public Use
  Company Number: A0718956A

PATIENT
  Age: 83 Year
  Sex: Female

DRUGS (3)
  1. CARVEDILOL [Suspect]
     Dosage: 6.25MG TWICE PER DAY
     Route: 048
     Dates: end: 20080219
  2. COREG CR [Suspect]
     Dosage: 20MG PER DAY
     Route: 048
     Dates: start: 20080219
  3. MULTIPLE MEDICATIONS [Concomitant]

REACTIONS (4)
  - FLUID RETENTION [None]
  - URINARY RETENTION [None]
  - VERTIGO [None]
  - WEIGHT INCREASED [None]
